FAERS Safety Report 24952840 (Version 2)
Quarter: 2025Q1

REPORT INFORMATION
  Report Type: Spontaneous
  Country: BR (occurrence: BR)
  Receive Date: 20250211
  Receipt Date: 20250218
  Transmission Date: 20250409
  Serious: Yes (Other)
  Sender: ROCHE
  Company Number: BR-002147023-NVSC2025BR019649

PATIENT
  Sex: Female

DRUGS (1)
  1. XOLAIR [Suspect]
     Active Substance: OMALIZUMAB
     Indication: Urticaria
     Dosage: 150 MG, QMO (150 MG LYOPHILIZED POWDER FOR INJECTION IN COLOURLESS GLASS VIAL + COLOURLESS GLASS AMP
     Route: 065

REACTIONS (6)
  - Systemic lupus erythematosus [Unknown]
  - Urticaria [Unknown]
  - Burning sensation [Unknown]
  - Product dose omission issue [Unknown]
  - Drug ineffective [Unknown]
  - Malaise [Unknown]
